FAERS Safety Report 15927077 (Version 3)
Quarter: 2019Q3

REPORT INFORMATION
  Report Type: Spontaneous
  Country: CA (occurrence: CA)
  Receive Date: 20190206
  Receipt Date: 20190815
  Transmission Date: 20191004
  Serious: Yes (Life-Threatening, Hospitalization)
  Sender: FDA-Public Use
  Company Number: CA-PFIZER INC-2019050748

PATIENT
  Age: 18 Month
  Sex: Male

DRUGS (12)
  1. ADVIL PEDIATRIC DROPS [Suspect]
     Active Substance: IBUPROFEN
     Dosage: 110 MG, SINGLE
     Route: 048
     Dates: start: 20190122, end: 20190122
  2. BENADRYL [Concomitant]
     Active Substance: DIPHENHYDRAMINE HYDROCHLORIDE
     Dosage: UNK
     Dates: start: 20190121, end: 20190121
  3. ADVIL PEDIATRIC DROPS [Suspect]
     Active Substance: IBUPROFEN
     Indication: PYREXIA
     Dosage: AS PER LABEL, EVERY 8 HOURS, TOTAL OF 13ML
     Dates: start: 201901, end: 201901
  4. BENADRYL [Concomitant]
     Active Substance: DIPHENHYDRAMINE HYDROCHLORIDE
     Dosage: 14 MG, AS NEEDED(EVERY 6 HOURS PRN)
     Route: 048
     Dates: start: 20190122, end: 201901
  5. BENADRYL [Concomitant]
     Active Substance: DIPHENHYDRAMINE HYDROCHLORIDE
     Dosage: 10 MG, AS NEEDED(EVERY 6 HOURS PRN)
     Route: 048
     Dates: start: 20190124, end: 201901
  6. TYLENOL [Concomitant]
     Active Substance: ACETAMINOPHEN
     Dosage: UNK
     Dates: start: 20190121, end: 20190121
  7. TYLENOL [Concomitant]
     Active Substance: ACETAMINOPHEN
     Dosage: 165 MG, SINGLE
     Dates: start: 20190122, end: 20190122
  8. ADVIL PEDIATRIC DROPS [Suspect]
     Active Substance: IBUPROFEN
     Dosage: UNK
     Dates: start: 20190121, end: 20190121
  9. ADVIL PEDIATRIC DROPS [Suspect]
     Active Substance: IBUPROFEN
     Dosage: 110 MG, AS NEEDED(EVERY 6 HOURS PRN)
     Route: 048
     Dates: start: 20190122, end: 20190124
  10. BENADRYL [Concomitant]
     Active Substance: DIPHENHYDRAMINE HYDROCHLORIDE
     Dosage: 10 MG, AS NEEDED(EVERY 6-8H PRN)
     Dates: start: 20190125, end: 201901
  11. TYLENOL [Concomitant]
     Active Substance: ACETAMINOPHEN
     Dosage: 165 MG, AS NEEDED(EVERY 4-6 HOURS PRN)
     Dates: start: 20190124, end: 201901
  12. TYLENOL [Concomitant]
     Active Substance: ACETAMINOPHEN
     Dosage: 165 MG, AS NEEDED(EVERY 6 HOURS PRN)
     Route: 048
     Dates: start: 20190122, end: 201901

REACTIONS (10)
  - Haemorrhage [Recovering/Resolving]
  - Melaena [Recovered/Resolved]
  - Asthenia [Recovering/Resolving]
  - Rectal haemorrhage [Recovered/Resolved]
  - Gastrointestinal haemorrhage [Recovered/Resolved]
  - Shock haemorrhagic [Unknown]
  - Gastrointestinal ulcer [Recovering/Resolving]
  - Epigastric discomfort [Recovering/Resolving]
  - Duodenitis [Unknown]
  - Haematochezia [Recovered/Resolved]

NARRATIVE: CASE EVENT DATE: 201901
